FAERS Safety Report 8814057 (Version 1)
Quarter: 2012Q4

REPORT INFORMATION
  Report Type: Spontaneous
  Country: CN (occurrence: None)
  Receive Date: 20120925
  Receipt Date: 20120925
  Transmission Date: 20130627
  Serious: Yes (Hospitalization)
  Sender: FDA-Public Use
  Company Number: 7160629

PATIENT
  Age: 59 Year
  Sex: Male

DRUGS (3)
  1. EUTHYROX [Suspect]
     Indication: THYROIDECTOMY
     Dates: start: 201205, end: 201206
  2. EUTHYROX [Suspect]
     Indication: THYROIDECTOMY
     Route: 048
  3. EUTHYROX [Suspect]
     Indication: THYROIDECTOMY
     Dosage: 0.5 to 2 tablets (1 in 1 D)
     Route: 048
     Dates: start: 201206

REACTIONS (2)
  - Cerebral infarction [None]
  - Atrial fibrillation [None]
